FAERS Safety Report 6751273-1 (Version None)
Quarter: 2010Q2

REPORT INFORMATION
  Report Type: 
  Country: None (occurrence: None)
  Receive Date: 20100602
  Receipt Date: 20100526
  Transmission Date: 20101027
  Serious: Yes (Other)
  Sender: FDA-Public Use
  Company Number: US-JNJFOC-20100510203

PATIENT
  Age: 40 Year
  Sex: Female

DRUGS (3)
  1. TOPAMAX [Suspect]
     Indication: MIGRAINE PROPHYLAXIS
     Route: 048
  2. TOPAMAX [Suspect]
     Route: 048
  3. BIRTH CONTROL PILL [Suspect]
     Indication: MIGRAINE
     Route: 048

REACTIONS (6)
  - FACTOR V LEIDEN MUTATION [None]
  - HEADACHE [None]
  - MALAISE [None]
  - ORAL CANDIDIASIS [None]
  - ORAL FUNGAL INFECTION [None]
  - WHITE BLOOD CELL COUNT DECREASED [None]
